FAERS Safety Report 8343357-1 (Version None)
Quarter: 2012Q2

REPORT INFORMATION
  Report Type: 
  Country: None (occurrence: None)
  Receive Date: 20120508
  Receipt Date: 20120427
  Transmission Date: 20120825
  Serious: Yes (Hospitalization, Other)
  Sender: FDA-Public Use
  Company Number: CA-JNJFOC-20110503141

PATIENT
  Sex: Male
  Weight: 106.6 kg

DRUGS (5)
  1. STELARA [Suspect]
     Route: 058
     Dates: start: 20101124
  2. STELARA [Suspect]
     Route: 058
     Dates: start: 20110607
  3. LIPITOR [Concomitant]
     Indication: HYPERLIPIDAEMIA
     Dates: start: 20100601
  4. STELARA [Suspect]
     Indication: PSORIASIS
     Route: 058
     Dates: start: 20090330, end: 20110216
  5. VITAMIN B-12 [Concomitant]

REACTIONS (1)
  - RENAL CELL CARCINOMA [None]
